FAERS Safety Report 12623198 (Version 2)
Quarter: 2016Q4

REPORT INFORMATION
  Report Type: Spontaneous
  Country: JP (occurrence: JP)
  Receive Date: 20160804
  Receipt Date: 20161108
  Transmission Date: 20170207
  Serious: Yes (Hospitalization)
  Sender: FDA-Public Use
  Company Number: PHJP2016JP022367

PATIENT
  Sex: Female

DRUGS (1)
  1. EXELON PATCH [Suspect]
     Active Substance: RIVASTIGMINE
     Indication: PRODUCT USED FOR UNKNOWN INDICATION
     Dosage: 54 MG (PATCH 10X3, 28.5 MG/24H), QD
     Route: 062
     Dates: end: 20160803

REACTIONS (3)
  - Drug administration error [Unknown]
  - Altered state of consciousness [Recovered/Resolved]
  - Overdose [Unknown]
